FAERS Safety Report 5490953-5 (Version None)
Quarter: 2007Q4

REPORT INFORMATION
  Report Type: 
  Country: None (occurrence: None)
  Receive Date: 20071019
  Receipt Date: 20071015
  Transmission Date: 20080405
  Serious: Yes (Hospitalization)
  Sender: FDA-Public Use
  Company Number: ES-PFIZER INC-2007085521

PATIENT
  Age: 91 Year
  Sex: Male

DRUGS (1)
  1. TRANKIMAZIN [Suspect]
     Route: 048
     Dates: start: 20060101, end: 20070102

REACTIONS (3)
  - MUTISM [None]
  - SOMNOLENCE [None]
  - UNRESPONSIVE TO STIMULI [None]
